FAERS Safety Report 8888502 (Version 1)
Quarter: 2012Q4

REPORT INFORMATION
  Report Type: 
  Country: US (occurrence: US)
  Receive Date: 20121106
  Receipt Date: 20121106
  Transmission Date: 20130627
  Serious: Yes (Hospitalization)
  Sender: FDA-Public Use
  Company Number: US-ARROW-2012-18538

PATIENT
  Age: 58 Year
  Sex: Male

DRUGS (1)
  1. ALLOPURINOL (WATSON LABORATORIES) [Suspect]
     Indication: ACCIDENTAL OVERDOSE
     Dosage: 100 mg, single
     Route: 048

REACTIONS (3)
  - Renal failure acute [Recovered/Resolved]
  - Gastritis haemorrhagic [Recovered/Resolved]
  - Accidental overdose [Recovered/Resolved]
